FAERS Safety Report 10768967 (Version 1)
Quarter: 2015Q1

REPORT INFORMATION
  Report Type: Spontaneous
  Country: GB (occurrence: GB)
  Receive Date: 20150206
  Receipt Date: 20150206
  Transmission Date: 20150721
  Serious: Yes (Other)
  Sender: FDA-Public Use
  Company Number: GB-TEVA-537540ISR

PATIENT
  Age: 72 Year
  Sex: Male

DRUGS (4)
  1. OCTREOTIDE [Suspect]
     Active Substance: OCTREOTIDE
     Indication: NEUROENDOCRINE TUMOUR
  2. LANREOTIDE [Suspect]
     Active Substance: LANREOTIDE
     Indication: CARCINOID SYNDROME
  3. OCTREOTIDE [Suspect]
     Active Substance: OCTREOTIDE
     Indication: CARCINOID SYNDROME
     Route: 065
  4. LANREOTIDE [Suspect]
     Active Substance: LANREOTIDE
     Indication: NEUROENDOCRINE TUMOUR
     Route: 065

REACTIONS (2)
  - Diarrhoea [Unknown]
  - Malignant neoplasm progression [Unknown]
